FAERS Safety Report 4271231-9 (Version None)
Quarter: 2004Q1

REPORT INFORMATION
  Report Type: 
  Country: None (occurrence: None)
  Receive Date: 20040113
  Receipt Date: 20040107
  Transmission Date: 20041129
  Serious: Yes (Hospitalization)
  Sender: FDA-Public Use
  Company Number: 163-20785-03110306

PATIENT
  Age: 71 Year
  Sex: Male

DRUGS (1)
  1. THALOMID [Suspect]
     Indication: MULTIPLE MYELOMA
     Dosage: 200 MG, DAILY, ORAL
     Route: 048
     Dates: start: 20030903, end: 20030101

REACTIONS (9)
  - DIABETIC NEUROPATHY [None]
  - DIALYSIS [None]
  - HYPOTENSION [None]
  - HYPOXIA [None]
  - MULTIPLE MYELOMA [None]
  - PULMONARY HAEMORRHAGE [None]
  - RENAL DISORDER [None]
  - RENAL FAILURE CHRONIC [None]
  - SEPTIC SHOCK [None]
